FAERS Safety Report 7980761-5 (Version None)
Quarter: 2011Q4

REPORT INFORMATION
  Report Type: 
  Country: None (occurrence: None)
  Receive Date: 20111214
  Receipt Date: 20111202
  Transmission Date: 20120403
  Serious: Yes (Hospitalization)
  Sender: FDA-Public Use
  Company Number: DE-ELI_LILLY_AND_COMPANY-DE201112000848

PATIENT
  Age: 44 Year
  Sex: Male
  Weight: 96.8 kg

DRUGS (6)
  1. LEVOTHYROXINE SODIUM [Concomitant]
     Dosage: 100 UG, QD
     Route: 048
     Dates: start: 20090101
  2. ZYPREXA [Suspect]
     Dosage: 25 MG, QD
     Route: 048
     Dates: start: 20110401, end: 20110701
  3. BUSPIRONE HCL [Concomitant]
     Dosage: 20 MG, QD
     Route: 048
     Dates: start: 20110401
  4. BUSPIRONE HCL [Concomitant]
     Dosage: 15 MG, QD
     Dates: start: 20100301, end: 20110331
  5. TRIMIPRAMINE MALEATE [Concomitant]
     Dosage: 175 MG, QD
     Route: 048
     Dates: start: 20100701
  6. LYRICA [Concomitant]
     Dosage: 300 MG, QD
     Route: 048
     Dates: start: 20110601

REACTIONS (2)
  - METABOLIC SYNDROME [None]
  - OVERDOSE [None]
